FAERS Safety Report 25633821 (Version 1)
Quarter: 2025Q3

REPORT INFORMATION
  Report Type: Spontaneous
  Country: CN (occurrence: CN)
  Receive Date: 20250801
  Receipt Date: 20250801
  Transmission Date: 20251020
  Serious: Yes (Hospitalization, Other)
  Sender: PFIZER
  Company Number: CN-PFIZER INC-PV202500091699

PATIENT
  Age: 25 Year
  Sex: Female

DRUGS (1)
  1. CYTARABINE [Suspect]
     Active Substance: CYTARABINE
     Indication: Acute myeloid leukaemia
     Dosage: 300 MG, 1X/DAY
     Route: 041
     Dates: start: 20250620, end: 20250625

REACTIONS (4)
  - Myelosuppression [Recovering/Resolving]
  - Disease recurrence [Recovering/Resolving]
  - Anaemia [Unknown]
  - Haemorrhage subcutaneous [Unknown]

NARRATIVE: CASE EVENT DATE: 20250101
